FAERS Safety Report 5869123-4 (Version None)
Quarter: 2008Q3

REPORT INFORMATION
  Report Type: 
  Country: None (occurrence: None)
  Receive Date: 20080903
  Receipt Date: 20080829
  Transmission Date: 20090109
  Serious: Yes (Death)
  Sender: FDA-Public Use
  Company Number: PE-BRISTOL-MYERS SQUIBB COMPANY-14124267

PATIENT
  Age: 69 Year
  Sex: Female

DRUGS (2)
  1. ABATACEPT [Suspect]
     Indication: RHEUMATOID ARTHRITIS
     Route: 042
     Dates: start: 20030401, end: 20080225
  2. LUMIRACOXIB [Concomitant]
     Dates: start: 20060912, end: 20080319

REACTIONS (2)
  - SEPTIC SHOCK [None]
  - WOUND INFECTION [None]
